FAERS Safety Report 9165834 (Version 2)
Quarter: 2013Q2

REPORT INFORMATION
  Report Type: Report from Study
  Country: CA (occurrence: CA)
  Receive Date: 20130315
  Receipt Date: 20130415
  Transmission Date: 20140414
  Serious: Yes (Other)
  Sender: FDA-Public Use
  Company Number: CA-ROCHE-1201173

PATIENT
  Age: 53 Year
  Sex: Male
  Weight: 72.6 kg

DRUGS (8)
  1. RITUXAN [Suspect]
     Indication: RHEUMATOID ARTHRITIS
     Route: 042
     Dates: start: 20101116
  2. RITUXAN [Suspect]
     Route: 042
     Dates: start: 20120104
  3. RITUXAN [Suspect]
     Route: 042
     Dates: start: 20120125
  4. PREDNISONE [Suspect]
     Indication: RHEUMATOID ARTHRITIS
     Route: 065
     Dates: end: 2012
  5. NAPROXEN [Concomitant]
  6. CITALOPRAM [Concomitant]
  7. RABEPRAZOLE [Concomitant]
  8. TYLENOL [Concomitant]
     Dosage: EXTRA STRENGTH
     Route: 065

REACTIONS (5)
  - Disease progression [Not Recovered/Not Resolved]
  - Arthralgia [Not Recovered/Not Resolved]
  - Muscle rupture [Unknown]
  - Tendon rupture [Unknown]
  - Bone density decreased [Not Recovered/Not Resolved]
